FAERS Safety Report 25127466 (Version 1)
Quarter: 2025Q1

REPORT INFORMATION
  Report Type: Report from Study
  Country: ZA (occurrence: ZA)
  Receive Date: 20250327
  Receipt Date: 20250327
  Transmission Date: 20250408
  Serious: Yes (Hospitalization)
  Sender: ABBVIE
  Company Number: ZA-ABBOTT-2024A-1385403

PATIENT
  Age: 74 Year
  Sex: Female

DRUGS (11)
  1. FENOFIBRATE [Suspect]
     Active Substance: FENOFIBRATE
     Indication: Blood cholesterol
     Dosage: 200 MG TAKE ONE CAPSULE DAILY
     Route: 048
  2. GLUCOPHAGE XR [Concomitant]
     Active Substance: METFORMIN HYDROCHLORIDE
     Indication: Diabetes mellitus
     Dosage: 500 MG TAKE ONE TABLET DAILY
     Route: 048
  3. ATORVASTATIN [Concomitant]
     Active Substance: ATORVASTATIN
     Indication: Blood cholesterol
     Dosage: 40 MG TAKE ONE TABLET AT NIGHT
     Route: 048
  4. VERAPAMIL HYDROCHLORIDE [Concomitant]
     Active Substance: VERAPAMIL HYDROCHLORIDE
     Indication: Hypertension
     Dosage: 240 MG TAKE ONE TABLET DAILY
     Route: 048
  5. Pharmapress [Concomitant]
     Indication: Hypertension
     Dosage: 10 MG TAKE ONE TABLET TWICE A DAY
     Route: 048
  6. Lantanon [Concomitant]
     Indication: Depression
     Dosage: 30 MG TAKE TWO TABLETS DAILY
     Route: 048
  7. CLONAZEPAM [Concomitant]
     Active Substance: CLONAZEPAM
     Indication: Epilepsy
     Dosage: 0.5 MG TAKE ONE TABLET TWICE A DAY
     Route: 048
  8. ROSUVASTATIN [Concomitant]
     Active Substance: ROSUVASTATIN
     Indication: Blood cholesterol
     Dosage: 20 MG TAKE ONE TABLET AT NIGHT
     Route: 048
  9. LEVOTHYROXINE [Concomitant]
     Active Substance: LEVOTHYROXINE
     Indication: Hypothyroidism
     Dosage: 50 MCG TAKE ONE TABLET IN THE MORNING
     Route: 048
  10. ECOTRIN [Concomitant]
     Active Substance: ASPIRIN
     Indication: Thrombosis prophylaxis
     Dosage: 81 MG TAKE ONE TABLET DAILY
     Route: 048
  11. RIVOTRIL [Concomitant]
     Active Substance: CLONAZEPAM
     Indication: Epilepsy
     Dosage: 0.5 MG TAKE ONE TABLET TWICE A DAY
     Route: 048

REACTIONS (2)
  - Cardiac disorder [Unknown]
  - Hospitalisation [Unknown]

NARRATIVE: CASE EVENT DATE: 20240701
